FAERS Safety Report 8993833 (Version 2)
Quarter: 2013Q1

REPORT INFORMATION
  Report Type: Spontaneous
  Country: US (occurrence: US)
  Receive Date: 20130102
  Receipt Date: 20130204
  Transmission Date: 20140127
  Serious: No
  Sender: FDA-Public Use
  Company Number: US-AMGEN-USASP2012083629

PATIENT
  Age: 71 Year
  Sex: Female

DRUGS (5)
  1. ENBREL [Suspect]
     Indication: RHEUMATOID ARTHRITIS
     Dosage: 50 MG, QWK
     Route: 058
     Dates: start: 20000707
  2. ASPIRIN [Concomitant]
     Dosage: 81 MG, QD
     Route: 048
     Dates: start: 2008
  3. VITAMIN B12                        /00056201/ [Concomitant]
     Dosage: 500 MG, QD
     Route: 048
     Dates: start: 2012
  4. RABEPRAZOLE [Concomitant]
     Dosage: 20 MG, QD
     Dates: start: 2007
  5. FISH OIL [Concomitant]
     Dosage: 1400 MG, QD
     Route: 048
     Dates: start: 2013

REACTIONS (1)
  - Ocular rosacea [Not Recovered/Not Resolved]
